FAERS Safety Report 7955609-5 (Version None)
Quarter: 2011Q4

REPORT INFORMATION
  Report Type: 
  Country: None (occurrence: None)
  Receive Date: 20111202
  Receipt Date: 20111123
  Transmission Date: 20120403
  Serious: Yes (Hospitalization)
  Sender: FDA-Public Use
  Company Number: DE-ASTRAZENECA-2011SE71928

PATIENT
  Age: 47 Year
  Sex: Female
  Weight: 58 kg

DRUGS (4)
  1. ACETYLCYSTEINE [Concomitant]
     Route: 065
  2. SEROQUEL [Suspect]
     Route: 048
  3. VIREAD [Suspect]
     Indication: HEPATITIS B
     Route: 065
     Dates: start: 20110401
  4. CITALOPRAM HYDROBROMIDE [Suspect]
     Route: 048

REACTIONS (2)
  - INTERSTITIAL GRANULOMATOUS DERMATITIS [None]
  - NECROTISING GRANULOMATOUS LYMPHADENITIS [None]
